FAERS Safety Report 8568021-5 (Version None)
Quarter: 2012Q3

REPORT INFORMATION
  Report Type: 
  Country: None (occurrence: None)
  Receive Date: 20120803
  Receipt Date: 20111121
  Transmission Date: 20120928
  Serious: No
  Sender: FDA-Public Use
  Company Number: US-ABBOTT-11P-163-0876278-00

PATIENT
  Sex: Male
  Weight: 118.04 kg

DRUGS (6)
  1. ASPIRIN [Concomitant]
     Indication: FLUSHING
  2. ANTIHISTAMINES [Concomitant]
     Indication: PRODUCT USED FOR UNKNOWN INDICATION
  3. NIASPAN [Suspect]
     Indication: BLOOD TRIGLYCERIDES INCREASED
  4. IBUPROFEN [Concomitant]
     Indication: HEADACHE
  5. UNKNOWN IMMUNE SUPPORT SUPPLEMENT [Concomitant]
     Indication: PRODUCT USED FOR UNKNOWN INDICATION
  6. NIASPAN [Suspect]
     Indication: HIGH DENSITY LIPOPROTEIN DECREASED
     Dosage: INITIAL DOSE-X2 500MG
     Dates: start: 20111118

REACTIONS (2)
  - FLUSHING [None]
  - HEADACHE [None]
